FAERS Safety Report 6448413-0 (Version None)
Quarter: 2009Q4

REPORT INFORMATION
  Report Type: 
  Country: None (occurrence: None)
  Receive Date: 20091120
  Receipt Date: 20091110
  Transmission Date: 20100525
  Serious: Yes (Other)
  Sender: FDA-Public Use
  Company Number: PHEH2009US14346

PATIENT
  Sex: Female
  Weight: 94.8 kg

DRUGS (32)
  1. EXJADE [Suspect]
     Indication: IRON OVERLOAD
     Dosage: 1250 MG, QD
     Route: 048
     Dates: start: 20080806, end: 20090825
  2. EXJADE [Suspect]
     Dosage: 1000 MG, QD
     Route: 048
     Dates: start: 20090825
  3. EXJADE [Suspect]
     Dosage: 500 MG, QD
     Dates: start: 20090826, end: 20090901
  4. VANCOMYCIN [Concomitant]
     Dosage: 1000 MG, Q12H
     Route: 042
     Dates: start: 20090816, end: 20090830
  5. COLACE [Concomitant]
     Indication: CONSTIPATION
     Dosage: UNK
  6. TRIAMCINOLONE [Concomitant]
     Indication: ECZEMA
     Dosage: UNK
     Route: 061
  7. DELSYM [Concomitant]
     Indication: COUGH
     Dosage: UNK
  8. SUDAFED 12 HOUR [Concomitant]
     Indication: NASAL CONGESTION
     Dosage: UNK
  9. ATIVAN [Concomitant]
     Indication: ANXIETY
     Dosage: 1 MG, Q6H
     Route: 048
     Dates: start: 20071114
  10. DAPSONE [Concomitant]
     Dosage: 50 MG, BID
     Route: 048
     Dates: start: 20081111, end: 20001211
  11. TACROLIMUS [Concomitant]
     Dosage: UNK
     Dates: end: 20081111
  12. BACTRIM [Concomitant]
  13. RITUXIMAB [Concomitant]
     Dosage: UNK
     Dates: start: 20080916
  14. ACYCLOVIR [Concomitant]
     Dosage: 800 MG, QD
     Route: 048
  15. PEN-VEE K [Concomitant]
     Dosage: 500 MG, QD
     Route: 048
  16. WARFARIN SODIUM [Concomitant]
     Dosage: 1 MG, QD
     Route: 048
  17. PREDNISONE [Concomitant]
     Dosage: 30MG AM / 20MG PM
     Route: 048
  18. NOVOLOG [Concomitant]
     Dosage: 5U BF/15U L/10U DIN
  19. LANTUS [Concomitant]
     Dosage: 25 U, QD
     Dates: start: 20090819
  20. LEXAPRO [Concomitant]
     Dosage: 20 MG, QD
     Route: 048
  21. PRILOSEC [Concomitant]
     Dosage: 20 MG, QD
     Route: 048
  22. M.V.I. [Concomitant]
     Dosage: UNK
     Route: 048
  23. PROBIOTICS (MICROORGANISMS W/PROBIOTIC ACTION) [Concomitant]
     Dosage: UNK
     Route: 048
  24. LOVAZA [Concomitant]
     Dosage: UNK
     Route: 048
  25. OSCAL 500-D [Concomitant]
     Dosage: UNK
     Route: 048
  26. PAMIDRONATE DISODIUM [Concomitant]
     Dosage: 30 MG, Q90DAYS
  27. ESTROGEN NOS [Concomitant]
     Dosage: UNK
     Route: 067
  28. DEPO-PROVERA [Concomitant]
     Dosage: 150 MG, Q90DAYS
     Route: 030
  29. AMBIEN [Concomitant]
     Dosage: 12.5 MG, HS PRN
     Route: 048
  30. FLEXERIL [Concomitant]
     Dosage: 10 MG, 1/2 TO 1 Q8HPRN
     Route: 048
  31. DILAUDID [Concomitant]
     Dosage: 2 MG, 1-2 Q3HPRN
     Route: 048
  32. OXYCODONE HCL [Concomitant]
     Dosage: 5 MG, Q4HPRN
     Route: 048

REACTIONS (17)
  - ANAEMIA [None]
  - BASAL CELL CARCINOMA [None]
  - BLOOD CREATININE INCREASED [None]
  - CONSTIPATION [None]
  - COUGH [None]
  - DEPRESSION [None]
  - ECZEMA [None]
  - HYPERMAGNESAEMIA [None]
  - HYPOMAGNESAEMIA [None]
  - INSOMNIA [None]
  - LIVER FUNCTION TEST ABNORMAL [None]
  - NASAL CONGESTION [None]
  - PROTEINURIA [None]
  - RENAL FAILURE [None]
  - SPLENECTOMY [None]
  - STAPHYLOCOCCAL BACTERAEMIA [None]
  - THROMBOCYTOPENIA [None]
